FAERS Safety Report 15847137 (Version 1)
Quarter: 2019Q1

REPORT INFORMATION
  Report Type: Spontaneous
  Country: US (occurrence: US)
  Receive Date: 20190121
  Receipt Date: 20190121
  Transmission Date: 20190417
  Serious: No
  Sender: FDA-Public Use
  Company Number: US-009507513-1901USA005282

PATIENT
  Sex: Female

DRUGS (2)
  1. FOLLISTIM AQ [Suspect]
     Active Substance: FOLLITROPIN
     Dosage: 300 UNITS, DAILY
     Route: 058
     Dates: start: 20180719
  2. GANIRELIX ACETATE INJECTION [Suspect]
     Active Substance: GANIRELIX ACETATE
     Dosage: 250 MICROGRAM, DAILY; STRENGTH: 250MCG/0.5(UNIT UNKNOWN)
     Route: 058
     Dates: start: 20180628

REACTIONS (1)
  - Injection site bruising [Unknown]
